FAERS Safety Report 8424664-0 (Version None)
Quarter: 2012Q2

REPORT INFORMATION
  Report Type: 
  Country: None (occurrence: None)
  Receive Date: 20120611
  Receipt Date: 20120604
  Transmission Date: 20120825
  Serious: Yes (Hospitalization)
  Sender: FDA-Public Use
  Company Number: US-BIOGENIDEC-2012BI019602

PATIENT
  Age: 55 Year
  Sex: Female
  Weight: 70 kg

DRUGS (15)
  1. BACLOFEN [Concomitant]
     Route: 048
  2. CYMBALTA [Concomitant]
     Route: 048
  3. COUMADIN [Concomitant]
     Route: 042
  4. MULTI-VITAMIN [Concomitant]
     Route: 048
  5. PROVIGIL [Concomitant]
     Route: 048
     Dates: start: 20111220
  6. BOTOX [Concomitant]
  7. COUMADIN [Concomitant]
     Route: 042
  8. LASIX [Concomitant]
     Route: 048
  9. VITAMIN D [Concomitant]
  10. VOLTAREN [Concomitant]
  11. TYSABRI [Suspect]
     Indication: MULTIPLE SCLEROSIS
     Route: 042
     Dates: start: 20081104
  12. CRANBERRY [Concomitant]
     Route: 048
  13. PROBIOTIC [Concomitant]
     Route: 048
  14. VICODIN [Concomitant]
     Indication: PAIN
     Route: 048
  15. VICODIN [Concomitant]
     Route: 048

REACTIONS (1)
  - SPINAL COMPRESSION FRACTURE [None]
